FAERS Safety Report 13693070 (Version 1)
Quarter: 2017Q2

REPORT INFORMATION
  Report Type: Spontaneous
  Country: US (occurrence: US)
  Receive Date: 20170626
  Receipt Date: 20170626
  Transmission Date: 20170830
  Serious: Yes (Hospitalization)
  Sender: FDA-Public Use
  Company Number: None

PATIENT
  Age: 64 Year
  Sex: Male

DRUGS (4)
  1. AKYNZEO [Suspect]
     Active Substance: NETUPITANT\PALONOSETRON HYDROCHLORIDE
     Indication: NEOPLASM MALIGNANT
     Route: 048
  2. METOCLOPRAM [Concomitant]
     Active Substance: METOCLOPRAMIDE
  3. LASIX [Concomitant]
     Active Substance: FUROSEMIDE
  4. ONDANSETRONE [Concomitant]
     Active Substance: ONDANSETRON

REACTIONS (3)
  - Vomiting [None]
  - Full blood count decreased [None]
  - Intra-abdominal fluid collection [None]

NARRATIVE: CASE EVENT DATE: 20170618
